FAERS Safety Report 5198026-6 (Version None)
Quarter: 2007Q1

REPORT INFORMATION
  Report Type: 
  Country: None (occurrence: None)
  Receive Date: 20070104
  Receipt Date: 20061227
  Transmission Date: 20070707
  Serious: Yes (Hospitalization)
  Sender: FDA-Public Use
  Company Number: SE-AVENTIS-200623041GDDC

PATIENT
  Age: 59 Year
  Sex: Male

DRUGS (17)
  1. FLAGYL [Suspect]
     Indication: INFECTION
     Route: 048
     Dates: start: 20060530, end: 20060710
  2. NEBCINA [Suspect]
     Indication: INFECTION
     Dates: start: 20060620, end: 20060706
  3. ARANESP [Concomitant]
     Dosage: DOSE: 30 MCG
     Route: 058
  4. SEVELAMER [Concomitant]
     Dosage: DOSE: 800 MG
     Route: 048
  5. ACTRAPID [Concomitant]
     Dosage: DOSE: 100 IU
     Route: 058
  6. ZOLPIDEM TARTRATE [Concomitant]
     Dosage: DOSE: 10 MG
     Route: 048
  7. FOLIC ACID [Concomitant]
     Dosage: DOSE: 5 MG
     Route: 048
  8. ALVEDON [Concomitant]
     Dosage: DOSE: 500 MG
     Route: 048
  9. ORALOVITE [Concomitant]
     Route: 048
  10. FOLIC ACID [Concomitant]
     Dosage: DOSE: 0.25 MCG
     Route: 048
  11. DEXOFEN [Concomitant]
     Dosage: DOSE: 50 MG
     Route: 048
  12. ACETYLCYSTEINE [Concomitant]
     Dosage: DOSE: 200 MG
     Route: 048
  13. PRECOSA [Concomitant]
     Dosage: DOSE: 250 MG
     Route: 048
  14. TOREM                              /01036501/ [Concomitant]
     Dosage: DOSE: 200 MG
     Route: 048
  15. SIFROL [Concomitant]
     Dosage: DOSE: 0.18 MG
     Route: 048
  16. PANTOLOC                           /01263201/ [Concomitant]
     Dosage: DOSE: 40 MG
     Route: 048
  17. LANTUS [Concomitant]
     Dosage: DOSE: 100 IU
     Route: 058

REACTIONS (5)
  - BALANCE DISORDER [None]
  - BLOOD PRESSURE DECREASED [None]
  - BRAIN STEM SYNDROME [None]
  - DIZZINESS [None]
  - GAIT DISTURBANCE [None]
